FAERS Safety Report 10457194 (Version 1)
Quarter: 2014Q3

REPORT INFORMATION
  Report Type: Spontaneous
  Country: US (occurrence: US)
  Receive Date: 20140916
  Receipt Date: 20140916
  Transmission Date: 20150326
  Serious: No
  Sender: FDA-Public Use
  Company Number: US-009507513-1409USA004976

PATIENT
  Age: 43 Year
  Sex: Female

DRUGS (1)
  1. CLARITIN-D 24 HOUR [Suspect]
     Active Substance: LORATADINE\PSEUDOEPHEDRINE SULFATE
     Indication: PRODUCT USED FOR UNKNOWN INDICATION
     Dosage: UNK, UNKNOWN
     Route: 048

REACTIONS (7)
  - Palpitations [Unknown]
  - Somnolence [Unknown]
  - Sleep disorder [Unknown]
  - Dry mouth [Unknown]
  - Chills [Unknown]
  - Headache [Unknown]
  - Insomnia [Unknown]
